FAERS Safety Report 8867950 (Version 1)
Quarter: 2012Q4

REPORT INFORMATION
  Report Type: 
  Country: US (occurrence: US)
  Receive Date: 20121025
  Receipt Date: 20121025
  Transmission Date: 20130627
  Serious: No
  Sender: FDA-Public Use
  Company Number: US-AMGEN-USASP2012016649

PATIENT
  Age: 64 Year
  Sex: Female
  Weight: 77.1 kg

DRUGS (9)
  1. ENBREL [Suspect]
     Indication: PRODUCT USED FOR UNKNOWN INDICATION
     Dosage: 50 mg, qwk
     Route: 058
  2. PREDNISONE [Concomitant]
     Dosage: 5 mg, UNK
  3. CALCIUM 500+D [Concomitant]
  4. FISH OIL [Concomitant]
  5. LEVOTHYROXIN [Concomitant]
     Dosage: 125 mug, UNK
  6. LISINOPRIL [Concomitant]
     Dosage: 30 mg, UNK
  7. METOPROLOL [Concomitant]
     Dosage: 100 mg, UNK
  8. CYMBALTA [Concomitant]
     Dosage: 30 mg, UNK
  9. MULTIVITAMIN                       /00097801/ [Concomitant]

REACTIONS (2)
  - Purpura [Unknown]
  - Rash pruritic [Unknown]
